FAERS Safety Report 6221866-9 (Version None)
Quarter: 2009Q2

REPORT INFORMATION
  Report Type: 
  Country: None (occurrence: None)
  Receive Date: 20090611
  Receipt Date: 20070925
  Transmission Date: 20091009
  Serious: Yes (Hospitalization)
  Sender: FDA-Public Use
  Company Number: US-ASTRAZENECA-2007UW08846

PATIENT
  Age: 18290 Day
  Sex: Female
  Weight: 118.4 kg

DRUGS (17)
  1. SEROQUEL [Suspect]
     Indication: BIPOLAR DISORDER
     Route: 048
     Dates: start: 20030108, end: 20031105
  2. SEROQUEL [Suspect]
     Indication: DEPRESSION
     Route: 048
     Dates: start: 20030108, end: 20031105
  3. SEROQUEL [Suspect]
     Route: 048
     Dates: start: 20040122
  4. SEROQUEL [Suspect]
     Route: 048
     Dates: start: 20040122
  5. SEROQUEL [Suspect]
     Route: 048
     Dates: start: 20040311, end: 20040414
  6. SEROQUEL [Suspect]
     Route: 048
     Dates: start: 20040311, end: 20040414
  7. ABILIFY [Concomitant]
     Dates: start: 20070309
  8. PROZAC [Concomitant]
  9. RISPERDAL [Concomitant]
     Indication: SLEEP DISORDER
     Dates: end: 20060101
  10. THORAZINE [Concomitant]
     Dates: start: 19890101
  11. THORAZINE [Concomitant]
     Dates: start: 19920506
  12. TOPAMAX [Concomitant]
     Dates: start: 20060101
  13. LITHIUM [Concomitant]
     Dosage: 300 MG 1 IN MORNING AND 2 AT NIGHT
     Route: 048
     Dates: start: 19901204
  14. ALLEGRA [Concomitant]
     Dosage: 60 MG ONCE A DAY OR TWICE A DAY
     Route: 048
  15. PROTONIX [Concomitant]
     Route: 048
     Dates: start: 20030108
  16. DOXEPIN HCL [Concomitant]
     Dosage: 10 MG 1 OR 2 HS PRN
  17. LISINOPRIL [Concomitant]
     Route: 048
     Dates: start: 20050825

REACTIONS (7)
  - DIABETES MELLITUS [None]
  - DIABETES MELLITUS INADEQUATE CONTROL [None]
  - HALLUCINATION, AUDITORY [None]
  - OBESITY [None]
  - OVERWEIGHT [None]
  - RENAL DISORDER [None]
  - TYPE 1 DIABETES MELLITUS [None]
